FAERS Safety Report 25188016 (Version 1)
Quarter: 2025Q2

REPORT INFORMATION
  Report Type: Spontaneous
  Country: US (occurrence: US)
  Receive Date: 20250411
  Receipt Date: 20250411
  Transmission Date: 20250717
  Serious: No
  Sender: KINIKSA PHARMACEUTICALS
  Company Number: US-Kiniksa Pharmaceuticals Ltd.-2025KPU000776

PATIENT
  Age: 52 Year
  Sex: Female

DRUGS (4)
  1. ARCALYST [Suspect]
     Active Substance: RILONACEPT
     Indication: Pericarditis
     Route: 058
     Dates: start: 2023
  2. ARCALYST [Suspect]
     Active Substance: RILONACEPT
     Route: 058
  3. ARCALYST [Suspect]
     Active Substance: RILONACEPT
     Route: 058
  4. EPINEPHRINE [Concomitant]
     Active Substance: EPINEPHRINE
     Indication: Dental operation

REACTIONS (10)
  - Tendonitis [Unknown]
  - Arthropathy [Unknown]
  - Gait disturbance [Unknown]
  - Joint swelling [Unknown]
  - Pericarditis [Unknown]
  - Dry eye [Unknown]
  - Therapy change [Unknown]
  - Myalgia [Unknown]
  - Arthralgia [Recovering/Resolving]
  - Myalgia [Recovering/Resolving]

NARRATIVE: CASE EVENT DATE: 20230101
